FAERS Safety Report 4338348-1 (Version None)
Quarter: 2004Q2

REPORT INFORMATION
  Report Type: 
  Country: None (occurrence: None)
  Receive Date: 20040409
  Receipt Date: 20040330
  Transmission Date: 20050107
  Serious: Yes (Life-Threatening, Hospitalization)
  Sender: FDA-Public Use
  Company Number: 2004AP01560

PATIENT
  Age: 15 Year
  Sex: Female
  Weight: 61.2 kg

DRUGS (14)
  1. SEROQUEL [Suspect]
     Indication: SCHIZOPHRENIA
     Dosage: 100 MG DAILY PO
     Route: 048
     Dates: start: 20040116, end: 20040116
  2. SEROQUEL [Suspect]
     Indication: SCHIZOPHRENIA
     Dosage: 100 MG BID PO
     Route: 048
     Dates: start: 20040117, end: 20040122
  3. SEROQUEL [Suspect]
     Indication: SCHIZOPHRENIA
     Dosage: 100 MG TID PO
     Route: 048
     Dates: start: 20040123, end: 20040130
  4. SEROQUEL [Suspect]
     Indication: SCHIZOPHRENIA
     Dosage: 200 MG BID PO
     Route: 048
     Dates: start: 20040130, end: 20040212
  5. SEROQUEL [Suspect]
     Indication: SCHIZOPHRENIA
     Dosage: 500 MG PO
     Route: 048
     Dates: start: 20040213, end: 20040226
  6. SEROQUEL [Suspect]
     Indication: SCHIZOPHRENIA
     Dosage: 200 MG BID PO
     Route: 048
     Dates: start: 20040227, end: 20040227
  7. SEROQUEL [Suspect]
     Indication: SCHIZOPHRENIA
     Dosage: 4800 MG PO
     Route: 048
     Dates: start: 20040228, end: 20040228
  8. DEPROMEL [Suspect]
     Indication: DEPRESSION
     Dosage: 75 MG DAILY PO
     Route: 048
     Dates: start: 20040227, end: 20040227
  9. DEPROMEL [Suspect]
     Indication: DEPRESSION
     Dosage: 900 MG PO
     Route: 048
     Dates: start: 20040228, end: 20040228
  10. CONTOMIN [Suspect]
     Indication: INSOMNIA
     Dosage: 25 MG DAILY PO
     Route: 048
     Dates: start: 20040206, end: 20040227
  11. CONTOMIN [Suspect]
     Indication: INSOMNIA
     Dosage: 300 MG PO
     Route: 048
     Dates: start: 20040228, end: 20040228
  12. CONTOMIN [Suspect]
     Indication: INSOMNIA
     Dosage: 25 MG PO
     Route: 048
     Dates: start: 20040301, end: 20040302
  13. ROHYPNOL [Concomitant]
  14. GASMOTIN [Concomitant]

REACTIONS (15)
  - ANXIETY [None]
  - ATELECTASIS [None]
  - DEPRESSED LEVEL OF CONSCIOUSNESS [None]
  - FEELING ABNORMAL [None]
  - HEADACHE [None]
  - IRRITABILITY [None]
  - LOSS OF CONSCIOUSNESS [None]
  - MALAISE [None]
  - OVERDOSE [None]
  - RENAL FAILURE ACUTE [None]
  - RHABDOMYOLYSIS [None]
  - SOCIAL AVOIDANT BEHAVIOUR [None]
  - SOMNOLENCE [None]
  - SUICIDAL IDEATION [None]
  - SUICIDE ATTEMPT [None]
